FAERS Safety Report 5081020-3 (Version None)
Quarter: 2006Q3

REPORT INFORMATION
  Report Type: 
  Country: None (occurrence: None)
  Receive Date: 20060810
  Receipt Date: 20060728
  Transmission Date: 20061208
  Serious: Yes (Death)
  Sender: FDA-Public Use
  Company Number: 111761ISR

PATIENT
  Age: 63 Year
  Sex: Female

DRUGS (9)
  1. CITALOPRAM HYDROBROMIDE [Suspect]
     Dosage: ORAL
     Route: 048
  2. OMEPRAZOLE [Suspect]
     Dosage: ORAL
     Route: 048
  3. PERINDOPRIL ERBUMINE [Suspect]
     Indication: HYPERTENSION
     Dosage: ORAL
     Route: 048
  4. DILTIAZEM HYDROCHLORIDE [Concomitant]
  5. BECLOMETHASONE DIPROPIONATE [Concomitant]
  6. FUROSEMIDE [Concomitant]
  7. ALBUTEROL SPIROS [Concomitant]
  8. SENNA [Concomitant]
  9. VITAMIN B COMPLEX CAP [Concomitant]

REACTIONS (1)
  - LARYNGEAL OEDEMA [None]
